FAERS Safety Report 15799914 (Version 5)
Quarter: 2020Q2

REPORT INFORMATION
  Report Type: Spontaneous
  Country: US (occurrence: US)
  Receive Date: 20190108
  Receipt Date: 20200610
  Transmission Date: 20200713
  Serious: Yes (Other)
  Sender: FDA-Public Use
  Company Number: US-PFIZER INC-2019010126

PATIENT
  Age: 73 Year
  Sex: Female

DRUGS (1)
  1. XELJANZ XR [Suspect]
     Active Substance: TOFACITINIB CITRATE
     Dosage: 11 MG

REACTIONS (7)
  - Spinal disorder [Unknown]
  - Dysstasia [Unknown]
  - Lumbar vertebral fracture [Unknown]
  - Back injury [Unknown]
  - Fall [Unknown]
  - Nerve compression [Unknown]
  - Gait inability [Unknown]

NARRATIVE: CASE EVENT DATE: 201808
